FAERS Safety Report 9358460 (Version 1)
Quarter: 2013Q2

REPORT INFORMATION
  Report Type: Spontaneous
  Country: US (occurrence: US)
  Receive Date: 20130620
  Receipt Date: 20130620
  Transmission Date: 20140414
  Serious: Yes (Other)
  Sender: FDA-Public Use
  Company Number: US-AMGEN-USASP2013043254

PATIENT
  Age: 52 Year
  Sex: Female
  Weight: 46.71 kg

DRUGS (10)
  1. ENBREL [Suspect]
     Indication: RHEUMATOID ARTHRITIS
     Dosage: UNK
     Route: 065
     Dates: start: 201203, end: 201205
  2. REMICADE [Suspect]
     Indication: RHEUMATOID ARTHRITIS
     Dosage: 200 MG, UNK
     Route: 042
     Dates: start: 20130410
  3. REMICADE [Suspect]
     Dosage: 200 MG, UNK
     Dates: start: 20130425
  4. REMICADE [Suspect]
     Dosage: UNK
     Route: 042
     Dates: end: 201305
  5. MOTRIN [Concomitant]
     Indication: RHEUMATOID ARTHRITIS
     Dosage: 600 MG, 2 TO 3 TIMES DAILY
     Route: 048
  6. METHOTREXATE [Concomitant]
     Indication: RHEUMATOID ARTHRITIS
     Dosage: 0.66 CUBIC CENTIMETER, WEEKLY
     Route: 058
  7. PREDNISONE [Concomitant]
     Dosage: 5 MG, UNK
     Route: 048
  8. CIMZIA [Concomitant]
     Indication: RHEUMATOID ARTHRITIS
     Dosage: UNK
     Dates: start: 201205, end: 201210
  9. ACTEMRA [Concomitant]
     Indication: RHEUMATOID ARTHRITIS
     Dosage: UNK
     Route: 065
     Dates: start: 201212, end: 201303
  10. ASPIRIN [Concomitant]
     Dosage: 80 MG, QD
     Route: 065

REACTIONS (12)
  - Rash [Unknown]
  - Dyspnoea [Recovered/Resolved]
  - Hyperhidrosis [Recovered/Resolved]
  - Chills [Recovered/Resolved]
  - Chest discomfort [Recovered/Resolved]
  - Rheumatoid arthritis [Recovered/Resolved]
  - Pain in extremity [Recovered/Resolved]
  - Musculoskeletal pain [Recovered/Resolved]
  - Myalgia [Recovered/Resolved]
  - Fatigue [Unknown]
  - Joint swelling [Unknown]
  - Drug hypersensitivity [Recovered/Resolved]
